FAERS Safety Report 8135800-8 (Version None)
Quarter: 2012Q1

REPORT INFORMATION
  Report Type: 
  Country: None (occurrence: None)
  Receive Date: 20120103
  Receipt Date: 20111107
  Transmission Date: 20120608
  Serious: No
  Sender: FDA-Public Use
  Company Number: AE-2011-003100

PATIENT
  Age: 68 Year
  Sex: Male
  Weight: 81.6475 kg

DRUGS (7)
  1. LEVOXYL [Concomitant]
  2. IBUPROFEN [Concomitant]
  3. RIBAVIRIN [Concomitant]
  4. HYDROCHLOROTHIAZIDE [Concomitant]
  5. INCIVEK [Suspect]
     Dosage: 2250 MG (750 MG, 1 IN 8 HR), ORAL
     Route: 048
     Dates: start: 20111104
  6. PEG-INTRON [Concomitant]
  7. ZOLOFT [Concomitant]

REACTIONS (4)
  - ARTHRALGIA [None]
  - NASOPHARYNGITIS [None]
  - NAUSEA [None]
  - EPISTAXIS [None]
